FAERS Safety Report 8858007 (Version 3)
Quarter: 2013Q4

REPORT INFORMATION
  Report Type: Spontaneous
  Country: US (occurrence: US)
  Receive Date: 20121024
  Receipt Date: 20131106
  Transmission Date: 20140711
  Serious: Yes (Other)
  Sender: FDA-Public Use
  Company Number: US-AMGEN-USASP2011064303

PATIENT
  Age: 67 Year
  Sex: Female

DRUGS (3)
  1. ENBREL [Suspect]
     Indication: PSORIASIS
     Dosage: 50 MG, QWK
     Route: 065
     Dates: start: 19950426
  2. ENBREL [Suspect]
     Indication: PSORIATIC ARTHROPATHY
     Dosage: UNK
     Route: 065
  3. METHOTREXATE [Concomitant]
     Dosage: 2.5 MG, UNK
     Dates: start: 20120113

REACTIONS (6)
  - Pharyngitis streptococcal [Not Recovered/Not Resolved]
  - Dysstasia [Recovered/Resolved]
  - Nasal cavity mass [Not Recovered/Not Resolved]
  - Weight decreased [Recovered/Resolved]
  - Psoriatic arthropathy [Recovered/Resolved]
  - Psoriasis [Not Recovered/Not Resolved]
